FAERS Safety Report 18268397 (Version 2)
Quarter: 2021Q1

REPORT INFORMATION
  Report Type: Spontaneous
  Country: GR (occurrence: GR)
  Receive Date: 20200915
  Receipt Date: 20210107
  Transmission Date: 20210419
  Serious: Yes (Hospitalization, Other)
  Sender: FDA-Public Use
  Company Number: GR-SHIRE-GR202029092

PATIENT
  Age: 32 Year
  Sex: Male

DRUGS (4)
  1. HYQVIA [Suspect]
     Active Substance: HUMAN IMMUNOGLOBULIN G\HYALURONIDASE RECOMBINANT HUMAN
     Indication: PRIMARY IMMUNODEFICIENCY SYNDROME
     Dosage: 100 MILLIGRAM PER MILLILITRE
     Route: 065
     Dates: start: 20200713
  2. HYQVIA [Suspect]
     Active Substance: HUMAN IMMUNOGLOBULIN G\HYALURONIDASE RECOMBINANT HUMAN
     Dosage: 100 MILLIGRAM PER MILLILITRE
     Route: 065
     Dates: start: 20200818
  3. HYQVIA [Suspect]
     Active Substance: HUMAN IMMUNOGLOBULIN G\HYALURONIDASE RECOMBINANT HUMAN
     Dosage: 100 MILLIGRAM PER MILLILITRE
     Route: 065
     Dates: start: 20200728
  4. HYQVIA [Suspect]
     Active Substance: HUMAN IMMUNOGLOBULIN G\HYALURONIDASE RECOMBINANT HUMAN
     Dosage: 100 MILLIGRAM PER MILLILITRE
     Route: 058
     Dates: start: 20200828

REACTIONS (3)
  - Sepsis [Unknown]
  - Joint swelling [Unknown]
  - Dermal absorption impaired [Unknown]
